FAERS Safety Report 8777533 (Version 3)
Quarter: 2013Q1

REPORT INFORMATION
  Report Type: Spontaneous
  Country: JP (occurrence: JP)
  Receive Date: 20120911
  Receipt Date: 20130124
  Transmission Date: 20140127
  Serious: Yes (Other)
  Sender: FDA-Public Use
  Company Number: JP-ASTRAZENECA-2012SE70058

PATIENT
  Age: 73 Year
  Sex: Male

DRUGS (6)
  1. NEXIUM [Suspect]
     Indication: GASTROOESOPHAGEAL REFLUX DISEASE
     Route: 048
     Dates: start: 20120518, end: 20120523
  2. ARTIST [Concomitant]
     Route: 065
  3. BLOPRESS [Concomitant]
     Route: 048
  4. URINORM [Concomitant]
     Route: 065
  5. NATRIX [Concomitant]
     Route: 065
  6. LISPINE [Concomitant]
     Route: 065

REACTIONS (3)
  - Rhabdomyolysis [Recovering/Resolving]
  - Blood creatine phosphokinase increased [Recovering/Resolving]
  - Hyponatraemia [Recovering/Resolving]
